FAERS Safety Report 8780677 (Version 1)
Quarter: 2012Q4

REPORT INFORMATION
  Report Type: 
  Country: NO (occurrence: NO)
  Receive Date: 20120913
  Receipt Date: 20120913
  Transmission Date: 20130627
  Serious: Yes (Hospitalization, Other)
  Sender: FDA-Public Use
  Company Number: NO-ASTRAZENECA-2012SE65506

PATIENT
  Age: 82 Year
  Sex: Female

DRUGS (7)
  1. ATENOLOL [Suspect]
     Indication: ATRIAL FIBRILLATION
     Route: 048
     Dates: start: 201202, end: 201205
  2. DIGOXIN [Suspect]
     Indication: ATRIAL FIBRILLATION
     Route: 048
     Dates: start: 201202, end: 201205
  3. BURINEX [Concomitant]
  4. SPIRIX [Concomitant]
  5. SYMBICORT [Concomitant]
  6. MAREVAN [Concomitant]
  7. NITRO-DUR [Concomitant]

REACTIONS (3)
  - Bradycardia [Recovering/Resolving]
  - Infected skin ulcer [Unknown]
  - Oedema peripheral [Unknown]
